FAERS Safety Report 19735497 (Version 2)
Quarter: 2021Q3

REPORT INFORMATION
  Report Type: Report from Study
  Country: RU (occurrence: RU)
  Receive Date: 20210823
  Receipt Date: 20210927
  Transmission Date: 20211014
  Serious: Yes (Life-Threatening, Hospitalization)
  Sender: FDA-Public Use
  Company Number: RU-GLAXOSMITHKLINE-RU2021176247

PATIENT
  Age: 59 Year
  Sex: Male
  Weight: 90 kg

DRUGS (31)
  1. BLINDED PEMBROLIZUMAB [Suspect]
     Active Substance: PEMBROLIZUMAB
     Indication: NON-SMALL CELL LUNG CANCER
     Dosage: DOSE AT CYCLE 1 ? DAY 1
     Dates: start: 20210531
  2. PLACEBO [Suspect]
     Active Substance: UNSPECIFIED INGREDIENT
     Dosage: DOSE AT CYCLE 3 ? DAY 1
     Dates: start: 20210712
  3. BLINDED PEMBROLIZUMAB [Suspect]
     Active Substance: PEMBROLIZUMAB
     Dosage: DOSE AT CYCLE 2 ? DAY 1
     Route: 042
     Dates: start: 20210621, end: 20210621
  4. BLINDED PEMBROLIZUMAB [Suspect]
     Active Substance: PEMBROLIZUMAB
     Dosage: DOSE AT CYCLE 4 ? DAY 1
     Route: 042
     Dates: start: 20210803, end: 20210803
  5. BISOPROLOL [Concomitant]
     Active Substance: BISOPROLOL
     Indication: HYPERTENSION
     Dosage: 5 MG (FREQUENCY = ONCE DAILY)
     Route: 048
     Dates: start: 20210201
  6. PLACEBO [Suspect]
     Active Substance: UNSPECIFIED INGREDIENT
     Dosage: DOSE AT CYCLE 2 ? DAY 1
     Dates: start: 20210621
  7. BLINDED NIRAPARIB [Suspect]
     Active Substance: NIRAPARIB
     Dosage: DOSE MODIFICATION FORM
     Dates: start: 20210803
  8. BLINDED NIRAPARIB [Suspect]
     Active Substance: NIRAPARIB
     Indication: NON-SMALL CELL LUNG CANCER
     Dosage: DOSE AT CYCLE 1 ? DAY 1
     Route: 042
     Dates: start: 20210531, end: 20210531
  9. FERROUS SULFATE. [Concomitant]
     Active Substance: FERROUS SULFATE
     Indication: ANAEMIA
     Dosage: 100 MG (FREQUENCY = TWICE DAILY)
     Route: 048
     Dates: start: 20210710
  10. PLACEBO [Suspect]
     Active Substance: UNSPECIFIED INGREDIENT
     Dosage: DOSE AT CYCLE 1 ? DAY 15
     Dates: start: 20210615
  11. BLINDED PEMBROLIZUMAB [Suspect]
     Active Substance: PEMBROLIZUMAB
     Dosage: DOSE MODIFICATION FORM
     Dates: start: 20210803
  12. PLACEBO [Suspect]
     Active Substance: UNSPECIFIED INGREDIENT
     Dosage: DOSE MODIFICATION FORM
     Dates: start: 20210803
  13. BLINDED PEMBROLIZUMAB [Suspect]
     Active Substance: PEMBROLIZUMAB
     Indication: NON-SMALL CELL LUNG CANCER
     Dosage: DOSE AT CYCLE 1 ? DAY 1
     Route: 042
     Dates: start: 20210531, end: 20210531
  14. FERRIC CARBOXYMALTOSE [Concomitant]
     Active Substance: FERRIC CARBOXYMALTOSE
     Indication: ANAEMIA
     Dosage: 500 MG (FREQUENCY = EVERY WEEK)
     Route: 042
     Dates: start: 20210802
  15. BLINDED NIRAPARIB [Suspect]
     Active Substance: NIRAPARIB
     Indication: NON-SMALL CELL LUNG CANCER
     Dosage: DOSE AT CYCLE 1 ? DAY 1
     Dates: start: 20210531
  16. PLACEBO [Suspect]
     Active Substance: UNSPECIFIED INGREDIENT
     Dosage: DOSE AT CYCLE 2 ? DAY 1
     Route: 042
     Dates: start: 20210621, end: 20210621
  17. PLACEBO [Suspect]
     Active Substance: UNSPECIFIED INGREDIENT
     Dosage: DOSE AT CYCLE 3 ? DAY 1
     Route: 042
     Dates: start: 20210712, end: 20210712
  18. BLINDED NIRAPARIB [Suspect]
     Active Substance: NIRAPARIB
     Dosage: DOSE AT CYCLE 1 ? DAY 15
     Dates: start: 20210615
  19. BLINDED NIRAPARIB [Suspect]
     Active Substance: NIRAPARIB
     Dosage: DOSE AT CYCLE 2 ? DAY 1
     Dates: start: 20210621
  20. BLINDED NIRAPARIB [Suspect]
     Active Substance: NIRAPARIB
     Dosage: DOSE AT CYCLE 3 ? DAY 1
     Dates: start: 20210712
  21. BLINDED PEMBROLIZUMAB [Suspect]
     Active Substance: PEMBROLIZUMAB
     Dosage: DOSE AT CYCLE 3 ? DAY 1
     Route: 042
     Dates: start: 20210712, end: 20210712
  22. PLACEBO [Suspect]
     Active Substance: UNSPECIFIED INGREDIENT
     Indication: NON-SMALL CELL LUNG CANCER
     Dosage: DOSE AT CYCLE 1 ? DAY 1
     Dates: start: 20210531
  23. BLINDED PEMBROLIZUMAB [Suspect]
     Active Substance: PEMBROLIZUMAB
     Dosage: DOSE AT CYCLE 1 ? DAY 15
     Dates: start: 20210615
  24. BLINDED PEMBROLIZUMAB [Suspect]
     Active Substance: PEMBROLIZUMAB
     Dosage: DOSE AT CYCLE 2 ? DAY 1
     Dates: start: 20210621
  25. BLINDED PEMBROLIZUMAB [Suspect]
     Active Substance: PEMBROLIZUMAB
     Dosage: DOSE AT CYCLE 3 ? DAY 1
     Dates: start: 20210712
  26. BLINDED NIRAPARIB [Suspect]
     Active Substance: NIRAPARIB
     Dosage: DOSE AT CYCLE 2 ? DAY 1
     Route: 042
     Dates: start: 20210621, end: 20210621
  27. BLINDED NIRAPARIB [Suspect]
     Active Substance: NIRAPARIB
     Dosage: DOSE AT CYCLE 4 ? DAY 1
     Route: 042
     Dates: start: 20210803, end: 20210803
  28. PLACEBO [Suspect]
     Active Substance: UNSPECIFIED INGREDIENT
     Dosage: DOSE AT CYCLE 4 ? DAY 1
     Route: 042
     Dates: start: 20210803, end: 20210803
  29. PERINDOPRIL [Concomitant]
     Active Substance: PERINDOPRIL
     Indication: HYPERTENSION
     Dosage: 10 MG (FREQUENCY = ONCE DAILY)
     Route: 048
     Dates: start: 20210201
  30. PLACEBO [Suspect]
     Active Substance: UNSPECIFIED INGREDIENT
     Indication: NON-SMALL CELL LUNG CANCER
     Dosage: DOSE AT CYCLE 1 ? DAY 1
     Route: 042
     Dates: start: 20210531, end: 20210531
  31. BLINDED NIRAPARIB [Suspect]
     Active Substance: NIRAPARIB
     Dosage: DOSE AT CYCLE 3 ? DAY 1
     Route: 042
     Dates: start: 20210712, end: 20210712

REACTIONS (1)
  - Anaemia [Recovered/Resolved]

NARRATIVE: CASE EVENT DATE: 20210812
